FAERS Safety Report 16177187 (Version 3)
Quarter: 2019Q2

REPORT INFORMATION
  Report Type: Report from Study
  Country: None (occurrence: US)
  Receive Date: 20190410
  Receipt Date: 20190625
  Transmission Date: 20190711
  Serious: Yes (Hospitalization, Other)
  Sender: FDA-Public Use
  Company Number: US-ABBVIE-19K-163-2735836-00

PATIENT
  Age: 87 Year
  Sex: Female

DRUGS (11)
  1. VENCLEXTA [Suspect]
     Active Substance: VENETOCLAX
     Dosage: DAY THREE (THREE TABLETS)
     Route: 048
     Dates: start: 201901, end: 201901
  2. ACYCLOVIR. [Concomitant]
     Active Substance: ACYCLOVIR
     Indication: HYPERTENSION
  3. VENCLEXTA [Suspect]
     Active Substance: VENETOCLAX
     Dosage: FOUR TABLETS FOR DAY FOUR AND ONWARDS
     Route: 048
     Dates: start: 201901, end: 20190319
  4. VENCLEXTA [Suspect]
     Active Substance: VENETOCLAX
     Route: 048
     Dates: start: 2019
  5. VENCLEXTA [Suspect]
     Active Substance: VENETOCLAX
     Indication: ACUTE MYELOID LEUKAEMIA
     Dosage: DAY ONE (ONE TABLET)
     Route: 048
     Dates: start: 201901, end: 201901
  6. VENCLEXTA [Suspect]
     Active Substance: VENETOCLAX
     Route: 048
     Dates: start: 20190326, end: 20190502
  7. VENCLEXTA [Suspect]
     Active Substance: VENETOCLAX
     Indication: ACUTE MYELOID LEUKAEMIA
     Dosage: DAY TWO (TWO TABLETS)
     Route: 048
     Dates: start: 201901, end: 201901
  8. VENCLEXTA [Suspect]
     Active Substance: VENETOCLAX
     Dosage: ONE TABLET FOR DAY ONE
     Route: 048
     Dates: start: 20190607, end: 20190607
  9. LISINOPRIL. [Concomitant]
     Active Substance: LISINOPRIL
     Indication: HYPERTENSION
  10. VENCLEXTA [Suspect]
     Active Substance: VENETOCLAX
     Dosage: TWO TABLETS FOR DAY TWO
     Route: 048
     Dates: start: 20190608, end: 20190608
  11. VENCLEXTA [Suspect]
     Active Substance: VENETOCLAX
     Dosage: THREE TABLETS FOR DAY THREE AND ONWARDS
     Route: 048
     Dates: start: 20190608

REACTIONS (3)
  - Clostridium difficile infection [Recovered/Resolved]
  - Haemoglobin decreased [Recovering/Resolving]
  - Urinary tract infection [Recovered/Resolved]

NARRATIVE: CASE EVENT DATE: 20190317
